FAERS Safety Report 5501451-4 (Version None)
Quarter: 2007Q4

REPORT INFORMATION
  Report Type: 
  Country: None (occurrence: None)
  Receive Date: 20071030
  Receipt Date: 20071022
  Transmission Date: 20080405
  Serious: Yes (Other)
  Sender: FDA-Public Use
  Company Number: PHBS2007BR17683

PATIENT
  Age: 72 Year
  Sex: Female

DRUGS (2)
  1. DIOVAN AMLO [Suspect]
     Indication: HYPERTENSION
     Dosage: 80/5MG, QD
     Route: 048
     Dates: start: 20070101
  2. PAROXETINE HYDROCHLORIDE [Concomitant]

REACTIONS (2)
  - HALLUCINATION [None]
  - INSOMNIA [None]
